FAERS Safety Report 7574624-7 (Version None)
Quarter: 2011Q2

REPORT INFORMATION
  Report Type: 
  Country: None (occurrence: None)
  Receive Date: 20110627
  Receipt Date: 20110622
  Transmission Date: 20111010
  Serious: Yes (Other)
  Sender: FDA-Public Use
  Company Number: US-ROXANE LABORATORIES, INC.-2011-RO-00880RO

PATIENT
  Age: 8 Year
  Sex: Male

DRUGS (2)
  1. AMLODIPINE [Suspect]
     Indication: HYPERTENSION
     Dosage: 5 MG
  2. NICARDIPINE HCL [Suspect]
     Indication: HYPERTENSION
     Route: 042

REACTIONS (2)
  - MACROGLOSSIA [None]
  - ANGIOEDEMA [None]
